FAERS Safety Report 10872603 (Version 2)
Quarter: 2015Q1

REPORT INFORMATION
  Report Type: Spontaneous
  Country: US (occurrence: US)
  Receive Date: 20150227
  Receipt Date: 20150303
  Transmission Date: 20150721
  Serious: Yes (Other)
  Sender: FDA-Public Use
  Company Number: US-ROCHE-1541760

PATIENT
  Age: 2 Year
  Sex: Female

DRUGS (1)
  1. TAMIFLU [Suspect]
     Active Substance: OSELTAMIVIR PHOSPHATE
     Indication: INFLUENZA
     Dosage: 1 TEASPOON TWICE A DAY
     Route: 065
     Dates: start: 20150218, end: 20150219

REACTIONS (8)
  - Abnormal behaviour [Recovered/Resolved]
  - Bowel movement irregularity [Unknown]
  - Mental disorder [Recovered/Resolved]
  - Pyrexia [Recovered/Resolved]
  - Product taste abnormal [Unknown]
  - Neuropsychiatric syndrome [Recovered/Resolved]
  - Abdominal pain upper [Unknown]
  - Delusion [Recovered/Resolved]

NARRATIVE: CASE EVENT DATE: 20150218
